FAERS Safety Report 5355299-4 (Version None)
Quarter: 2007Q2

REPORT INFORMATION
  Report Type: 
  Country: None (occurrence: None)
  Receive Date: 20070613
  Receipt Date: 20070611
  Transmission Date: 20071010
  Serious: Yes (Death, Hospitalization, Other)
  Sender: FDA-Public Use
  Company Number: US-BRISTOL-MYERS SQUIBB COMPANY-13575766

PATIENT
  Age: 74 Year
  Sex: Female

DRUGS (15)
  1. ORENCIA [Suspect]
     Route: 042
     Dates: start: 20060501
  2. METHOTREXATE [Concomitant]
     Dates: start: 20060101, end: 20061001
  3. ATENOLOL [Concomitant]
  4. DYAZIDE [Concomitant]
     Dosage: 37.5/25 ONE EVERY OTHER DAY OR ONE DAILY, DEPENDING ON EDEMA
  5. DILTIAZEM HCL [Concomitant]
  6. LEVOTHYROXINE SODIUM [Concomitant]
  7. ULTRAM [Concomitant]
  8. PREDNISONE TAB [Concomitant]
  9. TYLENOL [Concomitant]
  10. LIPITOR [Concomitant]
  11. POTASSIUM ACETATE [Concomitant]
  12. COZAAR [Concomitant]
  13. FOLIC ACID [Concomitant]
  14. ZETIA [Concomitant]
  15. AZULFIDINE [Concomitant]

REACTIONS (9)
  - DEHYDRATION [None]
  - HEPATIC FAILURE [None]
  - HEPATITIS B [None]
  - HEPATITIS B POSITIVE [None]
  - HEPATITIS FULMINANT [None]
  - LIVER FUNCTION TEST ABNORMAL [None]
  - NAUSEA [None]
  - VOMITING [None]
  - WEIGHT DECREASED [None]
